FAERS Safety Report 8972462 (Version 1)
Quarter: 2012Q4

REPORT INFORMATION
  Report Type: 
  Country: BR (occurrence: BR)
  Receive Date: 20121219
  Receipt Date: 20121219
  Transmission Date: 20130627
  Serious: Yes (Other)
  Sender: FDA-Public Use
  Company Number: BR-PFIZER INC-2012313327

PATIENT
  Age: 23 Year
  Sex: Female

DRUGS (2)
  1. SILDENAFIL CITRATE [Suspect]
     Indication: RECREATIONAL SUBSTANCE USE
     Dosage: Unspecified dose
  2. SILDENAFIL CITRATE [Suspect]
     Dosage: 50 mg, before sexual intercourse
     Dates: start: 20121108

REACTIONS (4)
  - Penis disorder [Unknown]
  - Penile pain [Recovering/Resolving]
  - Testicular disorder [Unknown]
  - Drug administration error [Unknown]
